FAERS Safety Report 18272716 (Version 1)
Quarter: 2020Q3

REPORT INFORMATION
  Report Type: Report from Study
  Country: CA (occurrence: CA)
  Receive Date: 20200916
  Receipt Date: 20200916
  Transmission Date: 20201103
  Serious: Yes (Other)
  Sender: FDA-Public Use
  Company Number: CA-PFIZER INC-2020355288

PATIENT
  Age: 64 Year
  Sex: Female

DRUGS (2)
  1. SANDOSTATIN LAR DEPOT [Suspect]
     Active Substance: OCTREOTIDE ACETATE
     Indication: CARCINOID TUMOUR
     Dosage: 30 MG, MONTHLY
     Route: 030
  2. AMLODIPINE BESILATE [Suspect]
     Active Substance: AMLODIPINE BESYLATE
     Indication: HYPERTENSION
     Dosage: UNK, 1X/DAY
     Route: 048

REACTIONS (13)
  - Cardiac disorder [Unknown]
  - Injection site pain [Unknown]
  - Malaise [Unknown]
  - Asthenia [Unknown]
  - Fatigue [Unknown]
  - Hypertension [Unknown]
  - Injection site mass [Unknown]
  - Blood chromogranin A increased [Unknown]
  - Influenza [Unknown]
  - Pyrexia [Unknown]
  - Pulmonary mass [Unknown]
  - Drug ineffective [Unknown]
  - Bronchitis [Unknown]
